FAERS Safety Report 8222434-X (Version None)
Quarter: 2012Q1

REPORT INFORMATION
  Report Type: 
  Country: None (occurrence: None)
  Receive Date: 20120320
  Receipt Date: 20120313
  Transmission Date: 20120608
  Serious: Yes (Death, Life-Threatening, Other)
  Sender: FDA-Public Use
  Company Number: US-ELI_LILLY_AND_COMPANY-US201202001655

PATIENT
  Sex: Male
  Weight: 51.701 kg

DRUGS (9)
  1. SPIRIVA [Concomitant]
     Dosage: 18 MG, QD
  2. VENTOLIN                                /SCH/ [Concomitant]
     Dosage: UNK, UNKNOWN
  3. COMPAZINE [Concomitant]
     Dosage: 5 MG, PRN
  4. PERCOCET [Concomitant]
     Dosage: UNK, UNKNOWN
  5. PREDNISONE TAB [Concomitant]
     Dosage: UNK, UNKNOWN
  6. ZOFRAN [Concomitant]
     Dosage: UNK, UNKNOWN
  7. GEMZAR [Suspect]
     Indication: LUNG NEOPLASM MALIGNANT
     Dosage: 1500 MG, EVERY 21 DAYS
     Dates: start: 20111223
  8. NICODERM [Concomitant]
     Dosage: 7 MG, OTHER
  9. CARBOPLATIN [Concomitant]
     Dosage: 455 MG, UNKNOWN
     Dates: start: 20111223

REACTIONS (6)
  - NAUSEA [None]
  - VOMITING [None]
  - EXSANGUINATION [None]
  - TOOTH ABSCESS [None]
  - CARDIO-RESPIRATORY ARREST [None]
  - HAEMATEMESIS [None]
